FAERS Safety Report 26195343 (Version 1)
Quarter: 2025Q4

REPORT INFORMATION
  Report Type: Spontaneous
  Country: EU (occurrence: EU)
  Receive Date: 20251224
  Receipt Date: 20251224
  Transmission Date: 20260118
  Serious: Yes (Death, Other)
  Sender: JOHNSON AND JOHNSON
  Company Number: None

PATIENT
  Age: 71 Year
  Sex: Female
  Weight: 67 kg

DRUGS (1)
  1. TECVAYLI [Suspect]
     Active Substance: TECLISTAMAB-CQYV
     Indication: Plasma cell myeloma
     Dosage: 96MG ABSOLUTE
     Route: 058
     Dates: start: 20240813, end: 20251031

REACTIONS (2)
  - Acute hepatic failure [Fatal]
  - Cytopenia [Recovering/Resolving]

NARRATIVE: CASE EVENT DATE: 20251114
